FAERS Safety Report 9661272 (Version 4)
Quarter: 2014Q2

REPORT INFORMATION
  Report Type: Spontaneous
  Country: US (occurrence: US)
  Receive Date: 20131031
  Receipt Date: 20140527
  Transmission Date: 20141212
  Serious: Yes (Hospitalization)
  Sender: FDA-Public Use
  Company Number: US-UCBSA-101761

PATIENT
  Age: 48 Year
  Sex: Female
  Weight: 54.43 kg

DRUGS (3)
  1. CIMZIA [Suspect]
     Indication: CROHN^S DISEASE
     Dates: start: 20130820
  2. IMURAN [Concomitant]
     Indication: CROHN^S DISEASE
     Route: 048
     Dates: start: 2011
  3. TRAMADOL [Concomitant]
     Indication: PAIN
     Dosage: 1 - 2 ONCE IN 4 HOURS
     Route: 048
     Dates: start: 201310

REACTIONS (7)
  - Ileostomy [Not Recovered/Not Resolved]
  - Asthenia [Not Recovered/Not Resolved]
  - Abdominal pain [Not Recovered/Not Resolved]
  - Dehydration [Not Recovered/Not Resolved]
  - Pain [Not Recovered/Not Resolved]
  - Drug dispensing error [Unknown]
  - Inappropriate schedule of drug administration [Not Recovered/Not Resolved]
